FAERS Safety Report 10190251 (Version 1)
Quarter: 2014Q2

REPORT INFORMATION
  Report Type: Spontaneous
  Country: IT (occurrence: IT)
  Receive Date: 20140522
  Receipt Date: 20140522
  Transmission Date: 20141212
  Serious: Yes (Hospitalization)
  Sender: FDA-Public Use
  Company Number: IT-FRI-1000067568

PATIENT
  Age: 36 Year
  Sex: Male

DRUGS (1)
  1. NEBIVOLOL [Suspect]
     Indication: HYPERTENSION
     Dosage: 5 MG
     Route: 048
     Dates: start: 20080101

REACTIONS (3)
  - Tinnitus [Unknown]
  - Hypertensive crisis [Unknown]
  - Epistaxis [Unknown]
